FAERS Safety Report 25234231 (Version 1)
Quarter: 2025Q2

REPORT INFORMATION
  Report Type: Spontaneous
  Country: US (occurrence: US)
  Receive Date: 20250424
  Receipt Date: 20250424
  Transmission Date: 20250716
  Serious: No
  Sender: MERCK SHARP & DOHME LLC
  Company Number: US-009507513-2278858

PATIENT
  Age: 66 Year
  Sex: Male

DRUGS (2)
  1. WELIREG [Suspect]
     Active Substance: BELZUTIFAN
     Route: 048
  2. CABOMETYX [Suspect]
     Active Substance: CABOZANTINIB S-MALATE
     Route: 048

REACTIONS (1)
  - Scratch [Unknown]
